FAERS Safety Report 7046043-3 (Version None)
Quarter: 2010Q4

REPORT INFORMATION
  Report Type: 
  Country: None (occurrence: None)
  Receive Date: 20101014
  Receipt Date: 20101001
  Transmission Date: 20110411
  Serious: Yes (Other)
  Sender: FDA-Public Use
  Company Number: US-MYLANLABS-2010S1018026

PATIENT
  Age: 78 Year
  Sex: Female
  Weight: 54.43 kg

DRUGS (1)
  1. ALENDRONATE SODIUM [Suspect]
     Indication: OSTEOPOROSIS
     Route: 048
     Dates: end: 20100916

REACTIONS (5)
  - INCREASED UPPER AIRWAY SECRETION [None]
  - LARYNGEAL ULCERATION [None]
  - LARYNGITIS [None]
  - PHARYNGEAL ULCERATION [None]
  - VOMITING [None]
